FAERS Safety Report 17273808 (Version 5)
Quarter: 2020Q1

REPORT INFORMATION
  Report Type: Report from Study
  Country: None (occurrence: US)
  Receive Date: 20200115
  Receipt Date: 20200326
  Transmission Date: 20200409
  Serious: Yes (Hospitalization)
  Sender: FDA-Public Use
  Company Number: US-ABBVIE-20P-163-3229905-00

PATIENT
  Sex: Female

DRUGS (2)
  1. IMBRUVICA [Suspect]
     Active Substance: IBRUTINIB
     Route: 048
  2. IMBRUVICA [Suspect]
     Active Substance: IBRUTINIB
     Indication: MANTLE CELL LYMPHOMA
     Route: 048
     Dates: start: 20191224, end: 2020

REACTIONS (9)
  - Feeling cold [Unknown]
  - Anxiety [Unknown]
  - Gastrointestinal disorder [Unknown]
  - Peripheral swelling [Unknown]
  - Fatigue [Unknown]
  - Pulmonary oedema [Unknown]
  - Atrial fibrillation [Unknown]
  - Diarrhoea [Unknown]
  - Hot flush [Unknown]
